FAERS Safety Report 7228165-7 (Version None)
Quarter: 2011Q1

REPORT INFORMATION
  Report Type: 
  Country: None (occurrence: None)
  Receive Date: 20110106
  Receipt Date: 20101221
  Transmission Date: 20110831
  Serious: Yes (Hospitalization)
  Sender: FDA-Public Use
  Company Number: DSA_44497_2010

PATIENT
  Age: 62 Year
  Sex: Female

DRUGS (4)
  1. DISOPYRAMIDE PHOSPHATE (RHYTHMODAN-DISOPYRAMIDE PHOSPHATE) [Suspect]
     Indication: ARRHYTHMIA
     Dosage: DF
  2. CARVEDILOL [Suspect]
     Indication: PRODUCT USED FOR UNKNOWN INDICATION
     Dosage: (12.5 MG, QD) (2.5 MG QD)
  3. HERBESSER R (HERBESSER R- DILTIAZEM HYDROCHLORIDE) (NOT SPECIFIED) [Suspect]
     Indication: PRODUCT USED FOR UNKNOWN INDICATION
     Dosage: 100 MG
  4. HERBESSER (HERBESSER-DILTAZEM HYDROCHLORIDE) (NOT SPECIFIED) [Suspect]
     Indication: PRODUCT USED FOR UNKNOWN INDICATION
     Dosage: 30 MG

REACTIONS (6)
  - VERTIGO [None]
  - CARDIAC ARREST [None]
  - SICK SINUS SYNDROME [None]
  - CARDIAC FAILURE [None]
  - ATRIAL FIBRILLATION [None]
  - HEART RATE IRREGULAR [None]
